FAERS Safety Report 10976355 (Version 1)
Quarter: 2015Q2

REPORT INFORMATION
  Report Type: Spontaneous
  Country: AU (occurrence: AU)
  Receive Date: 20150401
  Receipt Date: 20150401
  Transmission Date: 20150821
  Serious: Yes (Other)
  Sender: FDA-Public Use
  Company Number: ALCN2015AU002137

PATIENT
  Age: 60 Year
  Sex: Female

DRUGS (1)
  1. MAXIDEX [Suspect]
     Active Substance: DEXAMETHASONE
     Indication: PROPHYLAXIS
     Dosage: 1 GTT, QID
     Route: 047

REACTIONS (3)
  - Visual acuity reduced [Not Recovered/Not Resolved]
  - Ulcerative keratitis [Recovering/Resolving]
  - Keratitis [Recovering/Resolving]
